FAERS Safety Report 13737969 (Version 4)
Quarter: 2017Q3

REPORT INFORMATION
  Report Type: Spontaneous
  Country: FR (occurrence: FR)
  Receive Date: 20170710
  Receipt Date: 20170921
  Transmission Date: 20171127
  Serious: Yes (Hospitalization, Other)
  Sender: FDA-Public Use
  Company Number: FR-SA-2017SA116939

PATIENT
  Age: 36 Year
  Sex: Female

DRUGS (1)
  1. LEMTRADA [Suspect]
     Active Substance: ALEMTUZUMAB
     Indication: MULTIPLE SCLEROSIS
     Route: 041
     Dates: start: 20160620, end: 20160624

REACTIONS (6)
  - Hypoalbuminaemia [Unknown]
  - Weight increased [Unknown]
  - Glomerulonephritis membranous [Unknown]
  - Nephrotic syndrome [Recovering/Resolving]
  - Proteinuria [Unknown]
  - Oedema [Unknown]

NARRATIVE: CASE EVENT DATE: 201704
